FAERS Safety Report 26191017 (Version 1)
Quarter: 2025Q4

REPORT INFORMATION
  Report Type: Spontaneous
  Country: US (occurrence: None)
  Receive Date: 20251222
  Receipt Date: 20251222
  Transmission Date: 20260117
  Serious: No
  Sender: FDA-CTU
  Company Number: None

PATIENT
  Age: 2 Year
  Sex: Male

DRUGS (1)
  1. VTAMA [Suspect]
     Active Substance: TAPINAROF
     Dosage: FREQUENCY : AT BEDTIME;
     Route: 061
     Dates: start: 20251221, end: 20251222

REACTIONS (3)
  - Erythema [None]
  - Rash [None]
  - Application site erythema [None]

NARRATIVE: CASE EVENT DATE: 20251222
